FAERS Safety Report 8800279 (Version 2)
Quarter: 2012Q4

REPORT INFORMATION
  Report Type: 
  Country: DE (occurrence: DE)
  Receive Date: 20120921
  Receipt Date: 20121001
  Transmission Date: 20130627
  Serious: Yes (Other)
  Sender: FDA-Public Use
  Company Number: DE-AMGEN-DEUSP2012059290

PATIENT
  Age: 35 Year
  Sex: Female

DRUGS (1)
  1. ENBREL [Suspect]
     Indication: ANKYLOSING SPONDYLITIS
     Dosage: 50 mg, UNK
     Route: 030

REACTIONS (3)
  - Incorrect route of drug administration [Unknown]
  - Injection site abscess [Recovered/Resolved]
  - Product quality issue [Recovered/Resolved]
